FAERS Safety Report 7052673-5 (Version None)
Quarter: 2010Q4

REPORT INFORMATION
  Report Type: 
  Country: None (occurrence: None)
  Receive Date: 20101008
  Receipt Date: 20101005
  Transmission Date: 20110411
  Serious: Yes (Death, Other)
  Sender: FDA-Public Use
  Company Number: 2009-189155-NL

PATIENT
  Age: 23 Year
  Sex: Female
  Weight: 99.7 kg

DRUGS (3)
  1. NUVARING [Suspect]
     Indication: CONTRACEPTION
     Dates: start: 20041011, end: 20070421
  2. MARIJUANA [Concomitant]
  3. TYLENOL [Concomitant]

REACTIONS (16)
  - BLOOD POTASSIUM DECREASED [None]
  - BRADYCARDIA [None]
  - CARDIO-RESPIRATORY ARREST [None]
  - CONVULSION [None]
  - CYANOSIS [None]
  - DEVICE CAPTURING ISSUE [None]
  - ELECTROMECHANICAL DISSOCIATION [None]
  - GENERAL PHYSICAL HEALTH DETERIORATION [None]
  - MYDRIASIS [None]
  - NASOPHARYNGITIS [None]
  - POSTURING [None]
  - PULMONARY EMBOLISM [None]
  - PUPILS UNEQUAL [None]
  - SPEECH DISORDER [None]
  - VARICOSE VEIN [None]
  - VASOCONSTRICTION [None]
